FAERS Safety Report 13544532 (Version 2)
Quarter: 2017Q2

REPORT INFORMATION
  Report Type: Spontaneous
  Country: US (occurrence: US)
  Receive Date: 20170515
  Receipt Date: 20170610
  Transmission Date: 20170830
  Serious: Yes (Life-Threatening, Hospitalization, Other)
  Sender: FDA-Public Use
  Company Number: US-MYLANLABS-2017M1028407

PATIENT

DRUGS (1)
  1. MAGNESIUM [Suspect]
     Active Substance: MAGNESIUM
     Indication: CONSTIPATION
     Dosage: MULTIPLE DOSES
     Route: 065

REACTIONS (5)
  - Hypermagnesaemia [Recovering/Resolving]
  - Hypothermia [Recovering/Resolving]
  - Shock [Recovering/Resolving]
  - Cardiac arrest [Recovering/Resolving]
  - Apnoea [Recovering/Resolving]
